FAERS Safety Report 12545684 (Version 1)
Quarter: 2016Q3

REPORT INFORMATION
  Report Type: Spontaneous
  Country: US (occurrence: US)
  Receive Date: 20160711
  Receipt Date: 20160711
  Transmission Date: 20161109
  Serious: No
  Sender: FDA-Public Use
  Company Number: US-SHENZHEN TECHDOW PHARMACEUTICAL CO. LTD-US-2016TEC0000017

PATIENT

DRUGS (1)
  1. HEPARIN SODIUM INJECTION USP, CONTAINING PARABENS, WITHOUT NACL [Suspect]
     Active Substance: HEPARIN SODIUM
     Indication: PRODUCT USED FOR UNKNOWN INDICATION
     Dosage: UNK
     Route: 058

REACTIONS (5)
  - Product substitution issue [None]
  - Injection site reaction [Unknown]
  - Injection site urticaria [Unknown]
  - Injection site erythema [Unknown]
  - Injection site irritation [Unknown]
